FAERS Safety Report 12961066 (Version 1)
Quarter: 2016Q4

REPORT INFORMATION
  Report Type: Spontaneous
  Country: JP (occurrence: JP)
  Receive Date: 20161121
  Receipt Date: 20161121
  Transmission Date: 20170207
  Serious: Yes (Hospitalization)
  Sender: FDA-Public Use
  Company Number: JP-UNICHEM LABORATORIES LIMITED-UCM201611-000261

PATIENT
  Age: 92 Year
  Sex: Female

DRUGS (6)
  1. MEMANTINE. [Suspect]
     Active Substance: MEMANTINE
  2. MEMANTINE. [Suspect]
     Active Substance: MEMANTINE
  3. PRAVASTATIN. [Concomitant]
     Active Substance: PRAVASTATIN
  4. MEMANTINE. [Suspect]
     Active Substance: MEMANTINE
     Indication: DEMENTIA
  5. AMLODIPINE [Concomitant]
     Active Substance: AMLODIPINE BESYLATE
  6. MAGNESIUM OXIDE. [Concomitant]
     Active Substance: MAGNESIUM OXIDE

REACTIONS (1)
  - Loss of consciousness [Recovered/Resolved]
